FAERS Safety Report 5195254-0 (Version None)
Quarter: 2006Q4

REPORT INFORMATION
  Report Type: 
  Country: None (occurrence: None)
  Receive Date: 20061229
  Receipt Date: 20061106
  Transmission Date: 20070319
  Serious: Yes (Other)
  Sender: FDA-Public Use
  Company Number: JP-PFIZER INC-2006142461

PATIENT
  Age: 55 Year
  Sex: Male

DRUGS (5)
  1. GABAPEN [Suspect]
     Dosage: DAILY DOSE:900MG
     Route: 048
  2. RIVOTRIL [Concomitant]
     Route: 048
  3. CLOBAZAM [Concomitant]
     Route: 048
  4. DIAMOX [Concomitant]
     Route: 048
  5. ALEVIATIN [Concomitant]

REACTIONS (2)
  - EPILEPSY [None]
  - SOMNOLENCE [None]
